FAERS Safety Report 6093348-9 (Version None)
Quarter: 2009Q1

REPORT INFORMATION
  Report Type: 
  Country: None (occurrence: None)
  Receive Date: 20090226
  Receipt Date: 20081124
  Transmission Date: 20090719
  Serious: No
  Sender: FDA-Public Use
  Company Number: A0752018A

PATIENT
  Age: 16 Year
  Sex: Female
  Weight: 58 kg

DRUGS (3)
  1. ZIAGEN [Suspect]
     Indication: DRUG USE FOR UNKNOWN INDICATION
     Dosage: 15ML TWICE PER DAY
     Dates: start: 20071222, end: 20080106
  2. KALETRA [Concomitant]
     Dosage: 5ML TWICE PER DAY
     Dates: start: 20071222
  3. TRUVADA [Concomitant]
     Dates: start: 20071222

REACTIONS (3)
  - COUGH [None]
  - DIARRHOEA [None]
  - PYREXIA [None]
